FAERS Safety Report 6325368-0 (Version None)
Quarter: 2009Q3

REPORT INFORMATION
  Report Type: 
  Country: None (occurrence: None)
  Receive Date: 20090824
  Receipt Date: 20090716
  Transmission Date: 20100115
  Serious: No
  Sender: FDA-Public Use
  Company Number: US-ABBOTT-09P-163-0586345-00

PATIENT
  Sex: Male

DRUGS (1)
  1. NIASPAN [Suspect]
     Indication: LIPIDS INCREASED
     Dates: start: 20080101

REACTIONS (2)
  - LIPIDS INCREASED [None]
  - MEDICATION RESIDUE [None]
